FAERS Safety Report 8936291 (Version 2)
Quarter: 2012Q4

REPORT INFORMATION
  Report Type: 
  Country: US (occurrence: US)
  Receive Date: 20121130
  Receipt Date: 20121213
  Transmission Date: 20130627
  Serious: No
  Sender: FDA-Public Use
  Company Number: US-009507513-1211USA008204

PATIENT

DRUGS (3)
  1. ZOCOR [Concomitant]
     Route: 048
  2. MEVACOR TABLET [Suspect]
     Route: 048
  3. ZETIA [Concomitant]
     Indication: BLOOD CHOLESTEROL
     Dosage: 10 mg, UNK

REACTIONS (2)
  - Myalgia [Unknown]
  - Asthenia [Unknown]
